FAERS Safety Report 14261178 (Version 2)
Quarter: 2018Q1

REPORT INFORMATION
  Report Type: Spontaneous
  Country: US (occurrence: US)
  Receive Date: 20171207
  Receipt Date: 20180102
  Transmission Date: 20180508
  Serious: No
  Sender: FDA-Public Use
  Company Number: US-B.I. PHARMACEUTICALS,INC./RIDGEFIELD-2017-BI-064487

PATIENT
  Sex: Female

DRUGS (2)
  1. ADVAIR HFA [Concomitant]
     Active Substance: FLUTICASONE PROPIONATE\SALMETEROL XINAFOATE
     Indication: ASTHMA
     Dosage: 1 PUFF BID;
     Route: 055
  2. COMBIVENT [Suspect]
     Active Substance: ALBUTEROL SULFATE\IPRATROPIUM BROMIDE
     Indication: ASTHMA
     Dosage: 1 PUFF 4 TIMES DAY;  FORM STRENGTH: 20 MCG / 100 MCG; FORMULATION: INHALATION SPRAY
     Route: 055
     Dates: start: 2016

REACTIONS (4)
  - Product quality issue [Unknown]
  - Dyspnoea [Not Recovered/Not Resolved]
  - Off label use [Unknown]
  - Wheezing [Not Recovered/Not Resolved]

NARRATIVE: CASE EVENT DATE: 2016
